FAERS Safety Report 25417117 (Version 4)
Quarter: 2025Q4

REPORT INFORMATION
  Report Type: Spontaneous
  Country: JP (occurrence: JP)
  Receive Date: 20250610
  Receipt Date: 20251208
  Transmission Date: 20260118
  Serious: Yes (Hospitalization, Other)
  Sender: CATALYST PHARMA
  Company Number: JP-CATALYSTPHARMACEUTICALPARTNERS-JP-CATA-25-00813

PATIENT
  Age: 65 Year
  Sex: Female

DRUGS (12)
  1. FYCOMPA [Suspect]
     Active Substance: PERAMPANEL
     Indication: Epilepsy
     Dosage: 2.0 MILLIGRAM(S) (2 MILLIGRAM(S), 1 IN 1 DAY) (SOLUTION FOR INJECTION)
     Route: 042
     Dates: start: 20250425, end: 20250428
  2. FYCOMPA [Suspect]
     Active Substance: PERAMPANEL
     Indication: Status epilepticus
     Dosage: 4.0 MILLIGRAM(S) (4 MILLIGRAM(S), 1 IN 1 DAY) (FILM-COATED TABLET)
     Route: 048
     Dates: start: 20250429, end: 20250512
  3. FYCOMPA [Suspect]
     Active Substance: PERAMPANEL
     Dosage: 6.0 MILLIGRAM(S) (6 MILLIGRAM(S), 1 IN 1 DAY) (SOLUTION FOR INJECTION)
     Route: 042
     Dates: start: 20250513, end: 20250523
  4. LEVETIRACETAM [Suspect]
     Active Substance: LEVETIRACETAM
     Indication: Epilepsy
     Dosage: 9000 MILLIGRAM(S) (3000 MILLIGRAM(S), 1 IN 8 HOUR)
     Route: 048
     Dates: end: 20250520
  5. CLARITHROMYCIN [Interacting]
     Active Substance: CLARITHROMYCIN
     Indication: Respiratory disorder
     Dosage: DOSE AND FREQUENCY UNKNOWN
     Route: 048
     Dates: end: 20250604
  6. CLARITHROMYCIN [Interacting]
     Active Substance: CLARITHROMYCIN
     Indication: Asthma
  7. VIMPAT [Suspect]
     Active Substance: LACOSAMIDE
     Indication: Epilepsy
     Dosage: DOSE AND FREQUENCY UNKNOWN (SOLUTION FOR INJECTION)
     Route: 042
     Dates: start: 20250513, end: 20250527
  8. VIMPAT [Suspect]
     Active Substance: LACOSAMIDE
     Dosage: 400.0 MILLIGRAM(S) (200 MILLIGRAM(S), 1 IN 12 HOUR) (TABLET)
     Route: 048
     Dates: start: 20250528, end: 20250601
  9. VIMPAT [Suspect]
     Active Substance: LACOSAMIDE
     Dosage: TABLET
     Route: 048
     Dates: start: 20250602
  10. BRIVIACT [Concomitant]
     Active Substance: BRIVARACETAM
     Indication: Epilepsy
     Dosage: DOSE AND FREQUENCY UNKNOWN (SOLUTION FOR INJECTION)
     Route: 042
     Dates: start: 20250521, end: 20250527
  11. BRIVIACT [Concomitant]
     Active Substance: BRIVARACETAM
     Dosage: 50.0 MILLIGRAM(S) (25 MILLIGRAM(S), 1 IN 12 HOUR) (TABLET)
     Route: 048
     Dates: start: 20250528
  12. TALION [Concomitant]
     Indication: Product used for unknown indication
     Dosage: DOSE AND FREQUENCY UNKNOWN
     Route: 065
     Dates: end: 20250604

REACTIONS (13)
  - Affect lability [Recovering/Resolving]
  - Irritability [Recovering/Resolving]
  - Suicide attempt [Unknown]
  - Nervousness [Unknown]
  - Bradycardia [Unknown]
  - Dizziness [Unknown]
  - Headache [Unknown]
  - Ataxia [Unknown]
  - Balance disorder [Unknown]
  - Dysarthria [Unknown]
  - Abnormal behaviour [Unknown]
  - Drug interaction [Unknown]
  - Off label use [Unknown]

NARRATIVE: CASE EVENT DATE: 20250101
